FAERS Safety Report 20055642 (Version 1)
Quarter: 2021Q4

REPORT INFORMATION
  Report Type: Spontaneous
  Country: CN (occurrence: None)
  Receive Date: 20211110
  Receipt Date: 20211110
  Transmission Date: 20220304
  Serious: Yes (Other)
  Sender: FDA-Public Use
  Company Number: CN-ROCHE-2953179

PATIENT
  Age: 57 Year
  Sex: Male

DRUGS (5)
  1. AVASTIN [Suspect]
     Active Substance: BEVACIZUMAB
     Indication: Lung adenocarcinoma
     Dosage: ON 19/MAR2021, 11/APR/2021, 06/MAY/2021, 09/JUN/2021, 08/JUL/2021, 06/AUG/2021
     Route: 065
     Dates: start: 20210319
  2. AVASTIN [Suspect]
     Active Substance: BEVACIZUMAB
     Dosage: ON 03/SEP/2021, 21/OCT/2021
     Route: 065
     Dates: start: 20210903
  3. PEMETREXED [Concomitant]
     Active Substance: PEMETREXED
     Indication: Lung adenocarcinoma
     Dosage: ON 19 MAR 2021, 11 APR 2021, 06 MAY 2021, 09 JUN 2021, 08 JUL 2021, 06 AUG 2021
     Dates: start: 20210319
  4. PEMETREXED [Concomitant]
     Active Substance: PEMETREXED
     Dosage: ON 03 SEP 2021, 21 OCT 2021
     Dates: start: 20210903
  5. CARBOPLATIN [Concomitant]
     Active Substance: CARBOPLATIN
     Indication: Lung adenocarcinoma
     Dosage: ON 19 MAR 2021, 11 APR 2021, 06 MAY 2021, 09 JUN 2021, 08 JUL 2021, 06 AUG 2021
     Dates: start: 20210319

REACTIONS (2)
  - White blood cell count decreased [Recovering/Resolving]
  - Myelosuppression [Unknown]
